FAERS Safety Report 6512321-7 (Version None)
Quarter: 2009Q4

REPORT INFORMATION
  Report Type: 
  Country: None (occurrence: None)
  Receive Date: 20091222
  Receipt Date: 20090629
  Transmission Date: 20100525
  Serious: No
  Sender: FDA-Public Use
  Company Number: US-ASTRAZENECA-2009UW18233

PATIENT
  Age: 69 Year
  Sex: Female
  Weight: 42.2 kg

DRUGS (5)
  1. CRESTOR [Suspect]
     Indication: BLOOD CHOLESTEROL INCREASED
     Route: 048
     Dates: start: 20090201
  2. PREMPRO [Concomitant]
  3. DIAZEPAM [Concomitant]
  4. OMEPRAZOLE [Concomitant]
  5. TYLENOL (CAPLET) [Concomitant]

REACTIONS (2)
  - CONSTIPATION [None]
  - PAIN IN EXTREMITY [None]
